FAERS Safety Report 4367829-X (Version None)
Quarter: 2004Q2

REPORT INFORMATION
  Report Type: 
  Country: None (occurrence: None)
  Receive Date: 20040527
  Receipt Date: 20040311
  Transmission Date: 20050107
  Serious: Yes (Disabling)
  Sender: FDA-Public Use
  Company Number: ZONI001358

PATIENT
  Age: 34 Year
  Sex: Female

DRUGS (2)
  1. ZONEGRAN [Suspect]
     Indication: MIGRAINE
     Dosage: 50 MG DAILY ORAL
     Route: 048
     Dates: start: 20040309
  2. ACTIFED [Suspect]
     Indication: DRUG USE FOR UNKNOWN INDICATION
     Dates: start: 20040309, end: 20040309

REACTIONS (1)
  - DIPLOPIA [None]
